FAERS Safety Report 4505501-3 (Version None)
Quarter: 2004Q4

REPORT INFORMATION
  Report Type: 
  Country: None (occurrence: None)
  Receive Date: 20041119
  Receipt Date: 20041108
  Transmission Date: 20050328
  Serious: Yes (Death, Hospitalization)
  Sender: FDA-Public Use
  Company Number: GB-ROCHE-385768

PATIENT
  Age: 69 Year
  Sex: Male

DRUGS (8)
  1. CAPECITABINE [Suspect]
     Route: 048
     Dates: start: 20041022, end: 20041027
  2. EPIRUBICIN [Suspect]
     Route: 042
     Dates: start: 20041022, end: 20041027
  3. CISPLATIN [Suspect]
     Route: 042
     Dates: start: 20041022, end: 20041027
  4. GRANISETRON [Concomitant]
  5. METOCLOPRAMIDE [Concomitant]
  6. ZOTON [Concomitant]
  7. MILPAR [Concomitant]
  8. DESOXYMETHASONE [Concomitant]

REACTIONS (7)
  - BLOOD PRESSURE DECREASED [None]
  - DECREASED APPETITE [None]
  - FEBRILE NEUTROPENIA [None]
  - GASTROINTESTINAL HAEMORRHAGE [None]
  - HAEMOGLOBIN DECREASED [None]
  - VOMITING [None]
  - WEIGHT DECREASED [None]
